FAERS Safety Report 23921074 (Version 1)
Quarter: 2024Q2

REPORT INFORMATION
  Report Type: Spontaneous
  Country: US (occurrence: US)
  Receive Date: 20240530
  Receipt Date: 20240530
  Transmission Date: 20240716
  Serious: Yes (Death)
  Sender: FDA-Public Use
  Company Number: US-JNJFOC-20240575712

PATIENT
  Age: 6 Decade
  Sex: Female

DRUGS (4)
  1. BENADRYL [Suspect]
     Active Substance: DIPHENHYDRAMINE HYDROCHLORIDE
     Indication: Upper respiratory tract infection
     Route: 065
  2. NORCO [Interacting]
     Active Substance: ACETAMINOPHEN\HYDROCODONE BITARTRATE
     Indication: Pain
     Route: 065
  3. ALPRAZOLAM [Suspect]
     Active Substance: ALPRAZOLAM
     Indication: Anxiety
     Route: 065
  4. DIHYDROCODEINE [Interacting]
     Active Substance: DIHYDROCODEINE
     Indication: Product used for unknown indication
     Route: 065

REACTIONS (1)
  - Drug interaction [Fatal]
